FAERS Safety Report 8758979 (Version 1)
Quarter: 2012Q4

REPORT INFORMATION
  Report Type: 
  Country: DK (occurrence: DK)
  Receive Date: 20120829
  Receipt Date: 20120829
  Transmission Date: 20130627
  Serious: Yes (Hospitalization, Disabling, Other)
  Sender: FDA-Public Use
  Company Number: DK-009507513-2012SP024606

PATIENT

DRUGS (3)
  1. NUVARING [Suspect]
     Indication: CONTRACEPTION
     Dosage: UNK UNK, Unknown
  2. NUVARING [Suspect]
     Dosage: UNK UNK, Unknown
     Dates: start: 2009
  3. NUVARING [Suspect]
     Dosage: UNK
     Dates: start: 201006, end: 20100813

REACTIONS (7)
  - Thrombosis [Recovered/Resolved with Sequelae]
  - Pulmonary embolism [Recovered/Resolved]
  - Pulmonary embolism [Recovered/Resolved]
  - Dyspnoea [Recovered/Resolved]
  - Limb discomfort [Unknown]
  - Pain in extremity [Unknown]
  - Oedema peripheral [Unknown]
